FAERS Safety Report 17856555 (Version 2)
Quarter: 2020Q2

REPORT INFORMATION
  Report Type: Spontaneous
  Country: PT (occurrence: PT)
  Receive Date: 20200603
  Receipt Date: 20200616
  Transmission Date: 20200714
  Serious: Yes (Other)
  Sender: FDA-Public Use
  Company Number: PT-TEVA-2019-PT-1102295

PATIENT
  Age: 51 Year
  Sex: Female

DRUGS (9)
  1. METFORMIN [Suspect]
     Active Substance: METFORMIN HYDROCHLORIDE
     Indication: WEIGHT DECREASED
     Dosage: COMPOUNDED PREPARATION
     Route: 065
  2. FUROSEMIDE. [Suspect]
     Active Substance: FUROSEMIDE
     Indication: WEIGHT DECREASED
     Dosage: COMPOUNDED PREPARATION
     Route: 065
  3. TOPIRAMATE. [Suspect]
     Active Substance: TOPIRAMATE
     Indication: WEIGHT DECREASED
     Dosage: COMPOUNDED PREPARATION
     Route: 065
  4. HOODIA GORDONII [Suspect]
     Active Substance: DIETARY SUPPLEMENT
     Indication: WEIGHT DECREASED
     Dosage: COMPOUNDED PREPARATION
     Route: 065
  5. CHLORDIAZEPOXIDE. [Suspect]
     Active Substance: CHLORDIAZEPOXIDE
     Indication: WEIGHT DECREASED
     Dosage: COMPOUNDED PREPARATION
     Route: 065
  6. CASCARA SAGRADA [Suspect]
     Active Substance: FRANGULA PURSHIANA BARK
     Indication: WEIGHT DECREASED
     Dosage: COMPOUNDED PREPARATION
     Route: 065
  7. BUPROPION. [Suspect]
     Active Substance: BUPROPION
     Indication: WEIGHT DECREASED
     Dosage: COMPOUNDED PREPARATION
     Route: 065
  8. ORANGE EXTRACT [Suspect]
     Active Substance: DIETARY SUPPLEMENT\HERBALS
     Indication: WEIGHT DECREASED
     Dosage: COMPOUNDED PREPARATION?ORANGE EXTRACT
     Route: 065
  9. ETHINYLESTRADIOL/GESTODENE [Interacting]
     Active Substance: ETHINYL ESTRADIOL\GESTODENE
     Indication: CONTRACEPTION
     Dosage: 0.030MG/0.075MG FOR THE PAST 16 YEARS
     Route: 048

REACTIONS (3)
  - Drug interaction [Unknown]
  - Cerebral venous thrombosis [Unknown]
  - Intentional product misuse [Unknown]
